FAERS Safety Report 25769477 (Version 1)
Quarter: 2025Q3

REPORT INFORMATION
  Report Type: Spontaneous
  Country: EU (occurrence: EU)
  Receive Date: 20250906
  Receipt Date: 20250906
  Transmission Date: 20251021
  Serious: Yes (Death, Hospitalization)
  Sender: AMGEN
  Company Number: EU-AMGEN-GRCSP2025172119

PATIENT
  Age: 76 Year
  Sex: Female

DRUGS (9)
  1. PROLIA [Suspect]
     Active Substance: DENOSUMAB
     Indication: Osteoporosis
     Route: 058
  2. PROLIA [Suspect]
     Active Substance: DENOSUMAB
     Route: 058
  3. CINACALCET HYDROCHLORIDE [Suspect]
     Active Substance: CINACALCET HYDROCHLORIDE
     Indication: Chronic kidney disease
     Route: 065
  4. LEVOTHYROXINE [Concomitant]
     Active Substance: LEVOTHYROXINE
     Indication: Hypothyroidism
  5. LOSARTAN [Concomitant]
     Active Substance: LOSARTAN
     Indication: Hypertension
  6. CALCIUM [Concomitant]
     Active Substance: CALCIUM
  7. CALCIUM [Concomitant]
     Active Substance: CALCIUM
     Route: 040
  8. FUROSEMIDE [Concomitant]
     Active Substance: FUROSEMIDE
  9. PREDNISOLONE [Concomitant]
     Active Substance: PREDNISOLONE

REACTIONS (8)
  - Septic shock [Fatal]
  - Multiple organ dysfunction syndrome [Fatal]
  - Hyperparathyroidism primary [Unknown]
  - Infection [Unknown]
  - Chronic kidney disease [Unknown]
  - Hungry bone syndrome [Unknown]
  - Parathyroid tumour benign [Unknown]
  - Renal failure [Unknown]
